FAERS Safety Report 5068565-7 (Version None)
Quarter: 2006Q3

REPORT INFORMATION
  Report Type: 
  Country: None (occurrence: None)
  Receive Date: 20060802
  Receipt Date: 20051202
  Transmission Date: 20061208
  Serious: No
  Sender: FDA-Public Use
  Company Number: US-BRISTOL-MYERS SQUIBB COMPANY-13201983

PATIENT
  Age: 70 Year
  Sex: Female
  Weight: 54 kg

DRUGS (4)
  1. COUMADIN [Suspect]
     Indication: MYOCARDIAL INFARCTION
     Dosage: CURRENT DOSE REGIMEN:  2 MG THREE DAYS A WEEK; AND 3 MG TWO DAYS A WEEK
     Route: 048
     Dates: start: 20050501
  2. LOPRESSOR [Concomitant]
     Dosage: DURATION OF THERAPY:  ^SEVERAL YEARS^
  3. NEXIUM [Concomitant]
     Dosage: DURATION OF THERAPY:  ^SEVERAL MONTHS^
  4. LEVAQUIN [Concomitant]

REACTIONS (4)
  - HAEMATURIA [None]
  - INTERNATIONAL NORMALISED RATIO FLUCTUATION [None]
  - RASH PRURITIC [None]
  - URINARY TRACT INFECTION [None]
